FAERS Safety Report 7190002-7 (Version None)
Quarter: 2010Q4

REPORT INFORMATION
  Report Type: 
  Country: None (occurrence: None)
  Receive Date: 20101223
  Receipt Date: 20101210
  Transmission Date: 20110411
  Serious: No
  Sender: FDA-Public Use
  Company Number: US-BAYER-2010-006438

PATIENT
  Sex: Female

DRUGS (1)
  1. MAGNEVIST [Suspect]
     Dosage: DAILY DOSE 20 ML
     Dates: start: 20101209

REACTIONS (3)
  - FEELING HOT [None]
  - RASH GENERALISED [None]
  - RASH PRURITIC [None]
